FAERS Safety Report 10989108 (Version 2)
Quarter: 2016Q3

REPORT INFORMATION
  Report Type: Report from Study
  Country: FR (occurrence: FR)
  Receive Date: 20150406
  Receipt Date: 20160920
  Transmission Date: 20161109
  Serious: Yes (Hospitalization)
  Sender: FDA-Public Use
  Company Number: FR-ROCHE-1164853

PATIENT
  Age: 56 Year
  Sex: Female

DRUGS (3)
  1. RITUXIMAB [Suspect]
     Active Substance: RITUXIMAB
     Indication: RHEUMATOID ARTHRITIS
     Route: 042
     Dates: start: 20081124, end: 20081208
  2. CORTANCYL [Concomitant]
     Active Substance: PREDNISONE
     Route: 065
  3. RITUXIMAB [Suspect]
     Active Substance: RITUXIMAB
     Route: 042
     Dates: end: 20090409

REACTIONS (10)
  - Pain in extremity [Recovered/Resolved]
  - General physical health deterioration [Recovered/Resolved]
  - Peripheral swelling [Recovered/Resolved]
  - Gamma-glutamyltransferase increased [Not Recovered/Not Resolved]
  - Erythema [Recovered/Resolved]
  - Hepatocellular injury [Not Recovered/Not Resolved]
  - Impaired healing [Unknown]
  - Infection [Recovered/Resolved]
  - Sepsis [Recovered/Resolved]
  - Synovial cyst [Not Recovered/Not Resolved]

NARRATIVE: CASE EVENT DATE: 200901
